FAERS Safety Report 23077997 (Version 1)
Quarter: 2023Q4

REPORT INFORMATION
  Report Type: Spontaneous
  Country: US (occurrence: US)
  Receive Date: 20231018
  Receipt Date: 20231018
  Transmission Date: 20240110
  Serious: No
  Sender: FDA-Public Use
  Company Number: US-drreddys-SPO/USA/23/0178331

PATIENT
  Age: 20 Year
  Sex: Female

DRUGS (1)
  1. ACCUTANE [Suspect]
     Active Substance: ISOTRETINOIN
     Indication: Acne
     Dosage: RMA ISSUE DATE: 04 APRIL 2023 05:44:16 PM, 11 MAY 2023 12:38:12 PM, 12 JUNE 2023 03:22:08 PM, 14 JUL

REACTIONS (1)
  - Hypertransaminasaemia [Unknown]
